FAERS Safety Report 5920426-4 (Version None)
Quarter: 2008Q4

REPORT INFORMATION
  Report Type: 
  Country: None (occurrence: None)
  Receive Date: 20081016
  Receipt Date: 20081014
  Transmission Date: 20090506
  Serious: Yes (Death, Hospitalization, Other)
  Sender: FDA-Public Use
  Company Number: IT-BRISTOL-MYERS SQUIBB COMPANY-14370399

PATIENT
  Age: 72 Year
  Sex: Female

DRUGS (1)
  1. SPRYCEL [Suspect]
     Indication: CHRONIC MYELOID LEUKAEMIA
     Dosage: INTERRUPTED IN THE BEGINING OF OCT-2008 AND REINTRODUCED ON 08-OCT-2008
     Route: 048
     Dates: start: 20080501, end: 20081012

REACTIONS (6)
  - ATRIAL FIBRILLATION [None]
  - DEHYDRATION [None]
  - DIARRHOEA [None]
  - PYREXIA [None]
  - RENAL FAILURE [None]
  - SHOCK [None]
